FAERS Safety Report 16651635 (Version 1)
Quarter: 2019Q3

REPORT INFORMATION
  Report Type: Spontaneous
  Country: US (occurrence: US)
  Receive Date: 20190731
  Receipt Date: 20190731
  Transmission Date: 20191004
  Serious: No
  Sender: FDA-Public Use
  Company Number: US-BRISTOL-MYERS SQUIBB COMPANY-BMS-2019-075189

PATIENT
  Sex: Female
  Weight: 81.64 kg

DRUGS (1)
  1. ELIQUIS [Suspect]
     Active Substance: APIXABAN
     Indication: HIP ARTHROPLASTY
     Dosage: UNK UNK, BID
     Route: 065
     Dates: start: 20190717

REACTIONS (2)
  - Hypersensitivity [Unknown]
  - Sinusitis [Unknown]
